FAERS Safety Report 8202784-3 (Version None)
Quarter: 2012Q1

REPORT INFORMATION
  Report Type: 
  Country: None (occurrence: None)
  Receive Date: 20120312
  Receipt Date: 20120312
  Transmission Date: 20120608
  Serious: Yes (Disabling)
  Sender: FDA-Public Use
  Company Number: None

PATIENT
  Age: 32 Year
  Sex: Female
  Weight: 64.41 kg

DRUGS (2)
  1. CHANTIX [Suspect]
     Indication: EX-TOBACCO USER
     Dosage: 0.5MG
     Route: 048
     Dates: start: 20120302, end: 20120307
  2. CHANTIX [Concomitant]
     Dosage: 0.5MG
     Route: 048
     Dates: start: 20120302, end: 20120307

REACTIONS (3)
  - ANXIETY [None]
  - PANIC ATTACK [None]
  - ANGER [None]
